FAERS Safety Report 15480270 (Version 1)
Quarter: 2018Q4

REPORT INFORMATION
  Report Type: Spontaneous
  Country: US (occurrence: US)
  Receive Date: 20181009
  Receipt Date: 20181009
  Transmission Date: 20190205
  Serious: Yes (Other)
  Sender: FDA-Public Use
  Company Number: US-009507513-1202USA04352

PATIENT
  Age: 26 Year
  Sex: Female

DRUGS (3)
  1. COMBIVIR [Suspect]
     Active Substance: LAMIVUDINE\ZIDOVUDINE
     Dosage: EARLIEST TRIMESTER OF EXPOSURE 2
     Route: 048
     Dates: start: 20110921
  2. RETROVIR [Suspect]
     Active Substance: ZIDOVUDINE
     Dosage: 2000 MG, QD. EARLIEST TRIMESTER OF EXPOSURE 2
     Route: 042
     Dates: start: 20111125, end: 20111126
  3. ISENTRESS [Suspect]
     Active Substance: RALTEGRAVIR POTASSIUM
     Dosage: 800 MG, QD. EARLIEST TRIMESTER OF EXPOSURE 2
     Route: 048
     Dates: start: 20110921

REACTIONS (3)
  - Premature delivery [Recovered/Resolved]
  - Maternal exposure during pregnancy [Recovered/Resolved]
  - Diabetes mellitus [Unknown]

NARRATIVE: CASE EVENT DATE: 20111126
